FAERS Safety Report 9014796 (Version 2)
Quarter: 2013Q4

REPORT INFORMATION
  Report Type: Spontaneous
  Country: GB (occurrence: GB)
  Receive Date: 20130115
  Receipt Date: 20131004
  Transmission Date: 20140711
  Serious: Yes (Other)
  Sender: FDA-Public Use
  Company Number: PHHY2013GB002697

PATIENT
  Sex: Male

DRUGS (4)
  1. TRIMETHOPRIM [Suspect]
     Dates: start: 201203, end: 201204
  2. CLARITHROMYCIN [Suspect]
     Dates: start: 201203, end: 201204
  3. PRADAXA [Suspect]
     Dosage: 150 MG, BID
     Dates: start: 20091001
  4. MESALAZINE [Concomitant]
     Dosage: 400 MG, UNK
     Dates: start: 20050514

REACTIONS (7)
  - Raynaud^s phenomenon [Not Recovered/Not Resolved]
  - Muscle disorder [Not Recovered/Not Resolved]
  - Grip strength decreased [Not Recovered/Not Resolved]
  - Sensation of heaviness [Not Recovered/Not Resolved]
  - Asthenia [Not Recovered/Not Resolved]
  - Pain [Not Recovered/Not Resolved]
  - Candida infection [Unknown]
